FAERS Safety Report 25268275 (Version 1)
Quarter: 2025Q2

REPORT INFORMATION
  Report Type: Spontaneous
  Country: US (occurrence: US)
  Receive Date: 20250505
  Receipt Date: 20250505
  Transmission Date: 20250717
  Serious: No
  Sender: ADVANZ PHARMA
  Company Number: US-ADVANZ PHARMA-202504003196

PATIENT

DRUGS (3)
  1. PREDNISOLONE [Suspect]
     Active Substance: PREDNISOLONE
  2. ORAPRED [Suspect]
     Active Substance: PREDNISOLONE SODIUM PHOSPHATE
  3. PFIZER-BIONTECH COVID-19 VACCINE [Suspect]
     Active Substance: TOZINAMERAN

REACTIONS (10)
  - Asthma [Unknown]
  - General physical condition abnormal [Unknown]
  - Nasal congestion [Unknown]
  - Dyspnoea [Unknown]
  - Vomiting [Unknown]
  - Weight decreased [Unknown]
  - Wheezing [Unknown]
  - Screaming [Unknown]
  - Diarrhoea [Unknown]
  - Rash [Unknown]
